FAERS Safety Report 9878137 (Version 2)
Quarter: 2014Q1

REPORT INFORMATION
  Report Type: Spontaneous
  Country: US (occurrence: US)
  Receive Date: 20140206
  Receipt Date: 20140307
  Transmission Date: 20141002
  Serious: No
  Sender: FDA-Public Use
  Company Number: US-PFIZER INC-2014032590

PATIENT
  Sex: Female

DRUGS (3)
  1. QUINAPRIL HCL [Suspect]
     Dosage: UNK
  2. SPIRONOLACTONE [Suspect]
     Dosage: UNK
  3. NEURONTIN [Concomitant]
     Dosage: UNK

REACTIONS (4)
  - Hypersensitivity [Recovered/Resolved]
  - Gastrointestinal disorder [Recovered/Resolved]
  - Abdominal pain [Recovered/Resolved]
  - Pruritus generalised [Recovered/Resolved]
